FAERS Safety Report 5488027-2 (Version None)
Quarter: 2007Q4

REPORT INFORMATION
  Report Type: 
  Country: None (occurrence: None)
  Receive Date: 20071012
  Receipt Date: 20071012
  Transmission Date: 20080405
  Serious: Yes (Death)
  Sender: FDA-Public Use
  Company Number: None

PATIENT
  Age: 63 Year
  Sex: Male
  Weight: 77.1115 kg

DRUGS (2)
  1. CHANTIX [Suspect]
     Indication: SMOKING CESSATION THERAPY
     Dosage: 1MG 2 PO
     Route: 048
     Dates: start: 20070830, end: 20070909
  2. PREDNISOLONE [Suspect]
     Indication: RESPIRATORY THERAPY
     Dosage: 30 MG TAPER AS DIRECTED PO
     Route: 048
     Dates: start: 20070830, end: 20070912

REACTIONS (7)
  - APATHY [None]
  - COMPLETED SUICIDE [None]
  - CONFUSIONAL STATE [None]
  - DEPRESSION [None]
  - GUN SHOT WOUND [None]
  - PANIC REACTION [None]
  - STRESS AT WORK [None]
